FAERS Safety Report 4456127-1 (Version None)
Quarter: 2004Q3

REPORT INFORMATION
  Report Type: 
  Country: None (occurrence: None)
  Receive Date: 20040920
  Receipt Date: 20040907
  Transmission Date: 20050211
  Serious: Yes (Other)
  Sender: FDA-Public Use
  Company Number: 2004051811

PATIENT
  Sex: Male
  Weight: 9.2 kg

DRUGS (9)
  1. FLUCONAZOLE [Suspect]
     Indication: INFECTION
  2. FLUCONAZOLE [Suspect]
     Indication: PYREXIA
  3. MELPHALAN (MELPHALAN) [Suspect]
     Indication: STEM CELL TRANSPLANT
     Dosage: 30 MG, INTRAVENOUS
     Route: 042
  4. POLYMYXIN B SULFATE (POLYMYXIN B SULFATE) [Concomitant]
  5. AMPICLOX (AMPICILLIN, CLOXACILLIN) [Concomitant]
  6. ENOXAPARIN SODIUM [Concomitant]
  7. POTASSIUM CANRENOATE (POTASSIUM CANRENOATE) [Concomitant]
  8. MEFENAMIC ACID [Concomitant]
  9. HYDROXYZINE HCL [Concomitant]

REACTIONS (16)
  - ABDOMINAL PAIN UPPER [None]
  - ASCITES [None]
  - BLOOD BILIRUBIN INCREASED [None]
  - C-REACTIVE PROTEIN INCREASED [None]
  - DRUG INEFFECTIVE [None]
  - DYSPNOEA [None]
  - FEBRILE INFECTION [None]
  - HEPATOMEGALY [None]
  - MOUTH HAEMORRHAGE [None]
  - PLEURAL EFFUSION [None]
  - STOMATITIS [None]
  - TONGUE DISCOLOURATION [None]
  - URINE OUTPUT DECREASED [None]
  - VENOOCCLUSIVE LIVER DISEASE [None]
  - WEIGHT INCREASED [None]
  - WHITE BLOOD CELL COUNT ABNORMAL [None]
